FAERS Safety Report 5444120-1 (Version None)
Quarter: 2007Q3

REPORT INFORMATION
  Report Type: 
  Country: None (occurrence: None)
  Receive Date: 20070831
  Receipt Date: 20070821
  Transmission Date: 20080115
  Serious: Yes (Other)
  Sender: FDA-Public Use
  Company Number: 2007SP017149

PATIENT
  Age: 19 Year
  Sex: Female
  Weight: 69 kg

DRUGS (4)
  1. NASONEX [Suspect]
     Indication: DRUG USE FOR UNKNOWN INDICATION
  2. RIGEVIDON (NO PREF. NAME) [Suspect]
     Indication: DRUG USE FOR UNKNOWN INDICATION
     Dates: end: 20070701
  3. XYZAL [Suspect]
     Indication: DRUG USE FOR UNKNOWN INDICATION
  4. FEXOFENADINE HCL [Suspect]
     Indication: DRUG USE FOR UNKNOWN INDICATION

REACTIONS (1)
  - HEPATITIS CHOLESTATIC [None]
